FAERS Safety Report 25671630 (Version 1)
Quarter: 2025Q3

REPORT INFORMATION
  Report Type: Spontaneous
  Country: QA (occurrence: QA)
  Receive Date: 20250812
  Receipt Date: 20250812
  Transmission Date: 20251021
  Serious: Yes (Hospitalization, Other)
  Sender: AMGEN
  Company Number: QA-AMGEN-QATSP2025155565

PATIENT
  Age: 7 Year
  Sex: Male

DRUGS (1)
  1. ADALIMUMAB [Suspect]
     Active Substance: ADALIMUMAB
     Indication: Crohn^s disease
     Dosage: UNK UNK, Q2WK, MAINTAINED ON BESIDES COLCHICINE THERAPY
     Route: 058

REACTIONS (4)
  - Familial mediterranean fever [Unknown]
  - Immunosuppression [Unknown]
  - Pneumonia [Unknown]
  - Pleural effusion [Recovered/Resolved]
